FAERS Safety Report 7461707-5 (Version None)
Quarter: 2011Q2

REPORT INFORMATION
  Report Type: 
  Country: None (occurrence: None)
  Receive Date: 20110506
  Receipt Date: 20110325
  Transmission Date: 20111010
  Serious: Yes (Hospitalization)
  Sender: FDA-Public Use
  Company Number: US-BAYER-201023422NA

PATIENT
  Age: 33 Year
  Sex: Female
  Weight: 63.492 kg

DRUGS (19)
  1. ADVAIR DISKUS 100/50 [Concomitant]
  2. LEXAPRO [Concomitant]
  3. PRENATAL MULTIVIT-IRON [Concomitant]
  4. DROSPIRENONE AND ETHINYL ESTRADIOL [Suspect]
     Indication: PRODUCT USED FOR UNKNOWN INDICATION
     Route: 048
  5. DEXATRIM [Concomitant]
  6. ZOLOFT [Concomitant]
  7. CALCIUM [CALCIUM] [Concomitant]
  8. ABILIFY [Concomitant]
  9. AMBIEN [Concomitant]
  10. CLARITIN [Concomitant]
  11. LISINOPRIL [Concomitant]
  12. LORTAB [Concomitant]
  13. ELETRIPTAN HYDROBROMIDE [Concomitant]
  14. VITAMINS [Concomitant]
  15. VITAMIN D [Concomitant]
  16. LUNESTA [Concomitant]
  17. FISH OIL [Concomitant]
  18. YASMIN [Suspect]
     Indication: PRODUCT USED FOR UNKNOWN INDICATION
     Route: 048
  19. KLONOPIN [Concomitant]

REACTIONS (4)
  - ATAXIA [None]
  - GAIT DISTURBANCE [None]
  - CEREBELLAR INFARCTION [None]
  - DIZZINESS [None]
